FAERS Safety Report 7900505-2 (Version None)
Quarter: 2011Q4

REPORT INFORMATION
  Report Type: 
  Country: None (occurrence: None)
  Receive Date: 20111108
  Receipt Date: 20111102
  Transmission Date: 20120403
  Serious: Yes (Hospitalization)
  Sender: FDA-Public Use
  Company Number: US-BRISTOL-MYERS SQUIBB COMPANY-16211096

PATIENT
  Age: 48 Year
  Sex: Female
  Weight: 77 kg

DRUGS (3)
  1. CETUXIMAB [Suspect]
     Indication: COLORECTAL CANCER
     Dosage: LAST DOSE: DAY 29 ON 18OCT11 NO OF DOSE:10
     Dates: start: 20110419
  2. OXALIPLATIN [Suspect]
     Indication: COLORECTAL CANCER
     Dosage: LAST DOSE: DAY 29 ON 18OCT11 NO OF DOSE:11
     Dates: start: 20110419
  3. FLUOROURACIL [Suspect]
     Indication: COLORECTAL CANCER
     Dosage: LAST DOSE: DAY 29 ON 18OCT11 NO OF DOSE:11
     Dates: start: 20110419

REACTIONS (5)
  - CONSTIPATION [None]
  - ABDOMINAL PAIN [None]
  - PANCYTOPENIA [None]
  - EPISTAXIS [None]
  - FAECES DISCOLOURED [None]
